FAERS Safety Report 4616480-2 (Version None)
Quarter: 2005Q1

REPORT INFORMATION
  Report Type: 
  Country: None (occurrence: None)
  Receive Date: 20050318
  Receipt Date: 20050307
  Transmission Date: 20050727
  Serious: Yes (Other)
  Sender: FDA-Public Use
  Company Number: 2005042338

PATIENT
  Age: 76 Year
  Sex: Female
  Weight: 77.1115 kg

DRUGS (7)
  1. DETROL LA [Suspect]
     Indication: HYPERTONIC BLADDER
     Dosage: 4 MG (4 MG , 1 IN 1 D), ORAL
     Route: 048
     Dates: start: 20050306
  2. GLIMEPIRIDE (GLIMEPIRDE) [Concomitant]
  3. ATENOLOL [Concomitant]
  4. FENOFIBRATE (FNEOFIBRATE0 [Concomitant]
  5. ACETAMINOPHEN [Concomitant]
  6. LEVOTHYROXINE SODIUM [Concomitant]
  7. ALL OTEHR THERAPEUTIC PRDOUCTS (ALL OTEHR THERAPEUTIC PRDOUCTS) [Concomitant]

REACTIONS (3)
  - ABNORMAL BEHAVIOUR [None]
  - DEAFNESS [None]
  - SPEECH DISORDER [None]
